FAERS Safety Report 7255939-9 (Version None)
Quarter: 2011Q1

REPORT INFORMATION
  Report Type: 
  Country: None (occurrence: None)
  Receive Date: 20110129
  Receipt Date: 20100603
  Transmission Date: 20110831
  Serious: No
  Sender: FDA-Public Use
  Company Number: US-ABBOTT-10P-163-0643201-00

PATIENT
  Age: 48 Year
  Sex: Female

DRUGS (4)
  1. TRAZODONE HCL [Concomitant]
     Indication: PRODUCT USED FOR UNKNOWN INDICATION
     Dosage: AT BEDTIME
  2. HUMIRA [Suspect]
     Indication: CROHN'S DISEASE
     Dates: start: 20100301
  3. HUMIRA [Suspect]
     Indication: PSORIATIC ARTHROPATHY
  4. VITAMIN B-12 [Concomitant]
     Indication: PRODUCT USED FOR UNKNOWN INDICATION

REACTIONS (1)
  - WRONG TECHNIQUE IN DRUG USAGE PROCESS [None]
